FAERS Safety Report 7531014-0 (Version None)
Quarter: 2011Q2

REPORT INFORMATION
  Report Type: 
  Country: None (occurrence: None)
  Receive Date: 20110608
  Receipt Date: 20110104
  Transmission Date: 20111010
  Serious: Yes (Hospitalization, Other)
  Sender: FDA-Public Use
  Company Number: US-BAYER-200943289NA

PATIENT
  Age: 24 Year
  Sex: Female
  Weight: 71.655 kg

DRUGS (3)
  1. YAZ [Suspect]
     Indication: CONTRACEPTION
     Dates: start: 20080701, end: 20090615
  2. YAZ [Suspect]
     Dosage: UNK
     Dates: start: 20080201, end: 20090601
  3. PRILOSEC [Concomitant]
     Dosage: 1 DAILY
     Route: 048

REACTIONS (10)
  - CHOLELITHIASIS [None]
  - JAUNDICE [None]
  - CHOLECYSTITIS CHRONIC [None]
  - GASTROOESOPHAGEAL REFLUX DISEASE [None]
  - DYSPEPSIA [None]
  - VOMITING [None]
  - ABDOMINAL PAIN UPPER [None]
  - BILE DUCT STONE [None]
  - NAUSEA [None]
  - PYREXIA [None]
